FAERS Safety Report 17856717 (Version 1)
Quarter: 2020Q2

REPORT INFORMATION
  Report Type: Spontaneous
  Country: US (occurrence: US)
  Receive Date: 20200603
  Receipt Date: 20200603
  Transmission Date: 20200714
  Serious: Yes (Other)
  Sender: FDA-Public Use
  Company Number: US-AMGEN-USASP2020085488

PATIENT
  Age: 84 Year
  Sex: Female

DRUGS (1)
  1. PROLIA [Suspect]
     Active Substance: DENOSUMAB
     Indication: OSTEOPOROSIS POSTMENOPAUSAL
     Dosage: 60 MILLIGRAM, Q6MO
     Route: 065

REACTIONS (7)
  - Fracture [Unknown]
  - Fall [Unknown]
  - Temporomandibular joint syndrome [Unknown]
  - Spinal fracture [Unknown]
  - Upper limb fracture [Unknown]
  - Joint dislocation [Unknown]
  - Tooth disorder [Unknown]

NARRATIVE: CASE EVENT DATE: 201912
